FAERS Safety Report 6425979-8 (Version None)
Quarter: 2009Q4

REPORT INFORMATION
  Report Type: 
  Country: None (occurrence: None)
  Receive Date: 20091103
  Receipt Date: 20091103
  Transmission Date: 20100525
  Serious: No
  Sender: FDA-Public Use
  Company Number: None

PATIENT
  Age: 56 Year
  Sex: Male

DRUGS (1)
  1. CODEINE [Suspect]
     Dosage: 30 MG QID PO
     Route: 048
     Dates: start: 20090310, end: 20090313

REACTIONS (5)
  - CONVULSION [None]
  - HYPOTENSION [None]
  - NAUSEA [None]
  - SYNCOPE [None]
  - VOMITING [None]
